FAERS Safety Report 9161142 (Version 1)
Quarter: 2013Q1

REPORT INFORMATION
  Report Type: Spontaneous
  Country: DK (occurrence: GB)
  Receive Date: 20130313
  Receipt Date: 20130313
  Transmission Date: 20140127
  Serious: Yes (Other)
  Sender: FDA-Public Use
  Company Number: GB-FRI-1000043303

PATIENT
  Age: 30 Year
  Sex: Female
  Weight: 51 kg

DRUGS (2)
  1. CITALOPRAM [Suspect]
     Indication: OBSESSIVE-COMPULSIVE DISORDER
     Dosage: 40 MG
     Route: 048
  2. INHALERS (NOS) [Concomitant]

REACTIONS (3)
  - Contusion [Not Recovered/Not Resolved]
  - Pain of skin [Not Recovered/Not Resolved]
  - Off label use [Unknown]
